FAERS Safety Report 21937514 (Version 1)
Quarter: 2023Q1

REPORT INFORMATION
  Report Type: Spontaneous
  Country: US (occurrence: US)
  Receive Date: 20230201
  Receipt Date: 20230201
  Transmission Date: 20230418
  Serious: Yes (Death, Hospitalization, Other)
  Sender: FDA-Public Use
  Company Number: US-PFIZER INC-202300042534

PATIENT
  Age: 37 Year
  Sex: Female

DRUGS (8)
  1. BENZONATATE [Suspect]
     Active Substance: BENZONATATE
     Dosage: UNK (INGESTION)
     Route: 048
  2. HYDROXYZINE PAMOATE [Suspect]
     Active Substance: HYDROXYZINE PAMOATE
     Dosage: UNK (INGESTION)
     Route: 048
  3. VORTIOXETINE [Suspect]
     Active Substance: VORTIOXETINE
     Dosage: UNK (INGESTION)
     Route: 048
  4. LAMOTRIGINE [Suspect]
     Active Substance: LAMOTRIGINE
     Dosage: UNK (INGESTION)
     Route: 048
  5. TRAZODONE [Suspect]
     Active Substance: TRAZODONE HYDROCHLORIDE
     Dosage: UNK (INGESTION)
     Route: 048
  6. HYDROMORPHONE [Suspect]
     Active Substance: HYDROMORPHONE
     Dosage: UNK (INGESTION)
     Route: 048
  7. TRAMADOL [Suspect]
     Active Substance: TRAMADOL
     Dosage: UNK (INGESTION)
     Route: 048
  8. CYCLOBENZAPRINE [Suspect]
     Active Substance: CYCLOBENZAPRINE
     Dosage: UNK (INGESTION)
     Route: 048

REACTIONS (1)
  - Completed suicide [Fatal]

NARRATIVE: CASE EVENT DATE: 20210101
